FAERS Safety Report 25137168 (Version 1)
Quarter: 2025Q1

REPORT INFORMATION
  Report Type: Spontaneous
  Country: JP (occurrence: JP)
  Receive Date: 20250329
  Receipt Date: 20250329
  Transmission Date: 20250408
  Serious: Yes (Death, Other)
  Sender: ABBVIE
  Company Number: JP-TAKEDA-2025TJP003137

PATIENT
  Sex: Male

DRUGS (3)
  1. LEUPLIN [Suspect]
     Active Substance: LEUPROLIDE ACETATE
     Indication: Prostate cancer
     Dosage: 22.5 MILLIGRAM, QD
     Route: 058
     Dates: start: 20210513, end: 20210513
  2. LEUPLIN [Suspect]
     Active Substance: LEUPROLIDE ACETATE
  3. XOFIGO [Concomitant]
     Active Substance: RADIUM RA-223 DICHLORIDE
     Indication: Product used for unknown indication
     Route: 065

REACTIONS (2)
  - Death [Fatal]
  - Inappropriate schedule of product administration [Unknown]
